FAERS Safety Report 10356401 (Version 2)
Quarter: 2015Q4

REPORT INFORMATION
  Report Type: Spontaneous
  Country: DK (occurrence: DK)
  Receive Date: 20140801
  Receipt Date: 20151203
  Transmission Date: 20160304
  Serious: Yes (Hospitalization)
  Sender: FDA-Public Use
  Company Number: DK-009507513-1407DNK013624

PATIENT
  Age: 94 Year
  Sex: Female

DRUGS (1)
  1. FOSAMAX [Suspect]
     Active Substance: ALENDRONATE SODIUM
     Indication: OSTEOPOROSIS
     Dosage: 70 MG WEEKLY
     Route: 048
     Dates: start: 19900101

REACTIONS (5)
  - Osteonecrosis of jaw [Recovered/Resolved with Sequelae]
  - Sequestrectomy [Recovered/Resolved]
  - Pain in jaw [Unknown]
  - Sensory disturbance [Unknown]
  - Mouth swelling [Unknown]

NARRATIVE: CASE EVENT DATE: 20131004
